FAERS Safety Report 24595804 (Version 2)
Quarter: 2024Q4

REPORT INFORMATION
  Report Type: Report from Study
  Country: US (occurrence: US)
  Receive Date: 20241109
  Receipt Date: 20241120
  Transmission Date: 20250114
  Serious: No
  Sender: DR REDDYS
  Company Number: US-DRL-USA-CLI/USA/24/0016364

PATIENT
  Age: 64 Year
  Sex: Male
  Weight: 62.3 kg

DRUGS (2)
  1. JAVYGTOR [Suspect]
     Active Substance: SAPROPTERIN DIHYDROCHLORIDE
     Indication: Phenylketonuria
     Dosage: ONCE DAILY AS DIRECTED WITH A MEAL FOR A TOTAL DOSE OF 1300 MG PER DAY
     Route: 065
  2. JAVYGTOR [Suspect]
     Active Substance: SAPROPTERIN DIHYDROCHLORIDE
     Indication: Phenylketonuria
     Dosage: ONCE DAILY AS DIRECTED WITH A MEAL FOR A TOTAL DOSE OF 1300 MG PER DAY
     Route: 065

REACTIONS (1)
  - Mood altered [Unknown]
